FAERS Safety Report 4991927-0 (Version None)
Quarter: 2006Q2

REPORT INFORMATION
  Report Type: 
  Country: None (occurrence: None)
  Receive Date: 20060504
  Receipt Date: 20051031
  Transmission Date: 20061013
  Serious: Yes (Hospitalization, Other)
  Sender: FDA-Public Use
  Company Number: US-MERCK-0511USA00346

PATIENT
  Age: 62 Year
  Sex: Male
  Weight: 105 kg

DRUGS (17)
  1. VIOXX [Suspect]
     Indication: ARTHRITIS
     Route: 048
     Dates: start: 19991113, end: 20000915
  2. VIOXX [Suspect]
     Route: 048
     Dates: start: 19991113, end: 20000915
  3. ASPIRIN [Concomitant]
     Route: 065
  4. AVANDIA [Concomitant]
     Route: 065
  5. LEVOXYL [Concomitant]
     Route: 065
     Dates: start: 19981015, end: 20041223
  6. GLYSET [Concomitant]
     Route: 065
  7. PLAQUENIL [Concomitant]
     Route: 065
     Dates: start: 19980701, end: 20000601
  8. AUGMENTIN '125' [Concomitant]
     Route: 065
  9. DEPO-TESTOSTERONE [Concomitant]
     Route: 065
     Dates: start: 19990802, end: 20000201
  10. DOXYCYCLINE HYCLATE [Concomitant]
     Route: 065
  11. RIDAURA [Concomitant]
     Route: 065
     Dates: start: 19950119, end: 20000701
  12. MINOCYCLINE HYDROCHLORIDE [Concomitant]
     Route: 065
  13. ACTOS [Concomitant]
     Route: 065
  14. HYDROXYCHLOROQUINE SULFATE [Concomitant]
     Route: 065
     Dates: start: 19990617, end: 20000801
  15. VIAGRA [Concomitant]
     Route: 065
  16. MONOPRIL [Concomitant]
     Route: 065
  17. TYLENOL (CAPLET) [Concomitant]
     Route: 065
     Dates: start: 20000901, end: 20010101

REACTIONS (11)
  - ANAEMIA [None]
  - BLOOD CHOLESTEROL INCREASED [None]
  - BLOOD CREATININE INCREASED [None]
  - CARDIOVASCULAR DISORDER [None]
  - CHEST PAIN [None]
  - CORONARY ARTERY DISEASE [None]
  - MYOCARDIAL INFARCTION [None]
  - RECTAL HAEMORRHAGE [None]
  - RENAL FAILURE [None]
  - SYSTOLIC HYPERTENSION [None]
  - THYROID DISORDER [None]
